FAERS Safety Report 7081160-3 (Version None)
Quarter: 2010Q4

REPORT INFORMATION
  Report Type: 
  Country: None (occurrence: None)
  Receive Date: 20101103
  Receipt Date: 20101027
  Transmission Date: 20110411
  Serious: Yes (Other)
  Sender: FDA-Public Use
  Company Number: B0682071A

PATIENT
  Sex: Female

DRUGS (3)
  1. PAXIL [Suspect]
     Indication: PSYCHOSOMATIC DISEASE
     Route: 065
     Dates: start: 20090801, end: 20100901
  2. ALPRAZOLAM [Concomitant]
     Indication: ANXIETY
     Route: 048
  3. IBUPROFEN [Concomitant]
     Indication: ANTIPYRESIS
     Route: 065

REACTIONS (3)
  - ASTHENIA [None]
  - MEMORY IMPAIRMENT [None]
  - RASH [None]
